FAERS Safety Report 7641106-3 (Version None)
Quarter: 2011Q3

REPORT INFORMATION
  Report Type: 
  Country: None (occurrence: None)
  Receive Date: 20110728
  Receipt Date: 20110721
  Transmission Date: 20111222
  Serious: Yes (Death, Hospitalization)
  Sender: FDA-Public Use
  Company Number: US-AMGEN-USASP2011031660

PATIENT
  Age: 62 Year
  Sex: Female
  Weight: 59.864 kg

DRUGS (6)
  1. NPLATE [Suspect]
     Indication: IDIOPATHIC THROMBOCYTOPENIC PURPURA
     Dosage: 6.6 A?G, QWK
     Route: 058
     Dates: start: 20110228, end: 20110509
  2. LASIX [Concomitant]
     Dosage: 20 UNK, UNK
     Route: 048
  3. SEREVENT [Concomitant]
     Dosage: 50 MG, UNK
  4. ATENOLOL [Concomitant]
     Route: 048
  5. PROGESTERONE [Concomitant]
     Route: 048
  6. PLAQUENIL [Concomitant]
     Dosage: UNK
     Route: 048
     Dates: start: 20110124, end: 20110514

REACTIONS (1)
  - AORTIC ANEURYSM RUPTURE [None]
